FAERS Safety Report 6129678-1 (Version None)
Quarter: 2009Q1

REPORT INFORMATION
  Report Type: 
  Country: None (occurrence: None)
  Receive Date: 20090323
  Receipt Date: 20090323
  Transmission Date: 20090719
  Serious: Yes (Life-Threatening, Hospitalization, Other)
  Sender: FDA-Public Use
  Company Number: None

PATIENT
  Age: 40 Year
  Sex: Male
  Weight: 95.2554 kg

DRUGS (1)
  1. LEVAQUIN [Suspect]
     Indication: CHRONIC SINUSITIS
     Dosage: 1TAB Q24H PO
     Route: 048
     Dates: start: 20090301, end: 20090317

REACTIONS (1)
  - GRAND MAL CONVULSION [None]
